FAERS Safety Report 7003048-6 (Version None)
Quarter: 2010Q3

REPORT INFORMATION
  Report Type: 
  Country: None (occurrence: None)
  Receive Date: 20100920
  Receipt Date: 20100412
  Transmission Date: 20110219
  Serious: No
  Sender: FDA-Public Use
  Company Number: US-ASTRAZENECA-2010SE16265

PATIENT
  Age: 262 Month
  Sex: Male
  Weight: 81.6 kg

DRUGS (3)
  1. SEROQUEL [Suspect]
     Route: 048
     Dates: start: 20100201, end: 20100301
  2. SEROQUEL [Suspect]
     Route: 048
     Dates: start: 20100301, end: 20100301
  3. SEROQUEL [Suspect]
     Route: 048
     Dates: start: 20100401

REACTIONS (3)
  - FATIGUE [None]
  - HYPERPHAGIA [None]
  - RESTLESS LEGS SYNDROME [None]
